FAERS Safety Report 5373215-6 (Version None)
Quarter: 2007Q2

REPORT INFORMATION
  Report Type: 
  Country: None (occurrence: None)
  Receive Date: 20070628
  Receipt Date: 20070620
  Transmission Date: 20071010
  Serious: Yes (Hospitalization)
  Sender: FDA-Public Use
  Company Number: PHEH2007US03783

PATIENT
  Age: 58 Year
  Sex: Female

DRUGS (1)
  1. ZELNORM [Suspect]

REACTIONS (7)
  - ABDOMINAL MASS [None]
  - ABDOMINAL PAIN UPPER [None]
  - CHOLECYSTECTOMY [None]
  - COLECTOMY [None]
  - COLOSTOMY [None]
  - CRYING [None]
  - FEELING ABNORMAL [None]
